FAERS Safety Report 24799844 (Version 1)
Quarter: 2025Q1

REPORT INFORMATION
  Report Type: Spontaneous
  Country: US (occurrence: US)
  Receive Date: 20250102
  Receipt Date: 20250102
  Transmission Date: 20250409
  Serious: Yes (Other)
  Sender: PFIZER
  Company Number: US-PFIZER INC-202400332292

PATIENT
  Age: 71 Year
  Sex: Female

DRUGS (1)
  1. PAXLOVID [Suspect]
     Active Substance: NIRMATRELVIR\RITONAVIR
     Indication: COVID-19 treatment
     Dosage: UNK, 1X/DAY
     Dates: start: 20241205, end: 20241209

REACTIONS (5)
  - Sinus operation [Recovering/Resolving]
  - Headache [Recovering/Resolving]
  - Cough [Recovering/Resolving]
  - Fatigue [Recovering/Resolving]
  - Off label use [Unknown]

NARRATIVE: CASE EVENT DATE: 20241205
